FAERS Safety Report 19706097 (Version 1)
Quarter: 2021Q3

REPORT INFORMATION
  Report Type: Spontaneous
  Country: DE (occurrence: DE)
  Receive Date: 20210817
  Receipt Date: 20210817
  Transmission Date: 20211014
  Serious: Yes (Hospitalization)
  Sender: FDA-Public Use
  Company Number: DE-TEVA-2021-DE-1941203

PATIENT
  Age: 85 Year
  Sex: Female
  Weight: 74 kg

DRUGS (4)
  1. ACETYLSALICYLSAURE [Concomitant]
     Active Substance: ASPIRIN
     Dosage: 100 MILLIGRAM DAILY; 100 MG, 0?1?0?0
     Route: 048
  2. POTASSIUM IODIDE. [Concomitant]
     Active Substance: POTASSIUM IODIDE
     Dosage: 262 MICROGRAM DAILY; 262 UG, 1?0?0?0
     Route: 048
  3. TRAMADOL. [Concomitant]
     Active Substance: TRAMADOL
     Dosage: 100 MILLIGRAM DAILY; 50 MG, 1?0?1?0
     Route: 048
  4. ATENOLOL. [Suspect]
     Active Substance: ATENOLOL
     Dosage: 25 MILLIGRAM DAILY; 50 MG, 0.5?0?0?0
     Route: 048

REACTIONS (2)
  - Oedema peripheral [Unknown]
  - Pain [Unknown]
